FAERS Safety Report 9494332 (Version 2)
Quarter: 2014Q1

REPORT INFORMATION
  Report Type: Report from Study
  Country: US (occurrence: US)
  Receive Date: 20130903
  Receipt Date: 20140106
  Transmission Date: 20141002
  Serious: Yes (Death, Other)
  Sender: FDA-Public Use
  Company Number: US-JNJFOC-20130815427

PATIENT
  Sex: Male
  Weight: 148.78 kg

DRUGS (31)
  1. REMICADE [Suspect]
     Indication: CROHN^S DISEASE
     Route: 042
     Dates: start: 201306
  2. TIZANIDINE [Concomitant]
     Route: 065
  3. TRIMETHOPRIM [Concomitant]
     Route: 065
  4. METRONIDAZOLE [Concomitant]
     Route: 048
  5. JANUVIA [Concomitant]
     Route: 048
  6. FLOVENT [Concomitant]
     Route: 055
  7. FLUTICASONE [Concomitant]
     Route: 045
  8. SPIRIVA [Concomitant]
     Route: 065
  9. TRAZODONE [Concomitant]
     Route: 048
  10. RANITIDINE HCL [Concomitant]
     Route: 048
  11. LEVOTHYROXINE [Concomitant]
     Route: 048
  12. MONTELUKAST [Concomitant]
     Route: 048
  13. GABAPENTIN [Concomitant]
     Route: 048
  14. TRIAMTERENE [Concomitant]
     Route: 048
  15. HYDROCHLOROTHIAZIDE [Concomitant]
     Route: 048
  16. FINASTERIDE [Concomitant]
     Route: 048
  17. LISINOPRIL [Concomitant]
     Route: 048
  18. FUROSEMIDE [Concomitant]
     Route: 048
  19. CYMBALTA [Concomitant]
     Route: 048
  20. OMEPRAZOLE [Concomitant]
     Route: 048
  21. HYDROXYZINE [Concomitant]
     Route: 048
  22. TAMSULOSIN HCL [Concomitant]
     Route: 048
  23. NAPROXEN [Concomitant]
     Route: 048
  24. PRAVASTATIN [Concomitant]
     Route: 048
  25. DOCUSATE [Concomitant]
     Route: 048
  26. ASPIRIN [Concomitant]
     Route: 048
  27. FEBUXOSTAT [Concomitant]
     Route: 065
  28. MERCAPTOPURINE [Concomitant]
     Route: 048
  29. ALBUTEROL [Concomitant]
     Route: 065
  30. SULFAMETHOXAZOLE [Concomitant]
     Route: 065
  31. LORATADINE [Concomitant]
     Route: 048

REACTIONS (5)
  - Death [Fatal]
  - Haemorrhoids [Unknown]
  - Fistula [Unknown]
  - Abscess [Unknown]
  - Cough [Unknown]
